FAERS Safety Report 9282357 (Version 1)
Quarter: 2013Q2

REPORT INFORMATION
  Report Type: Spontaneous
  Country: US (occurrence: US)
  Receive Date: 20130510
  Receipt Date: 20130510
  Transmission Date: 20140414
  Serious: No
  Sender: FDA-Public Use
  Company Number: US-MYLANLABS-2013S1008465

PATIENT
  Age: 70 Year
  Sex: Male
  Weight: 99.79 kg

DRUGS (2)
  1. MODAFINIL TABLETS USP [Suspect]
     Indication: POOR QUALITY SLEEP
     Route: 048
     Dates: start: 20130404
  2. MODAFINIL TABLETS USP [Suspect]
     Indication: SLEEP APNOEA SYNDROME
     Route: 048
     Dates: start: 20130404

REACTIONS (2)
  - Drug ineffective [Not Recovered/Not Resolved]
  - Somnolence [Not Recovered/Not Resolved]
